FAERS Safety Report 6800873-9 (Version None)
Quarter: 2010Q2

REPORT INFORMATION
  Report Type: 
  Country: None (occurrence: None)
  Receive Date: 20100624
  Receipt Date: 20100621
  Transmission Date: 20101027
  Serious: Yes (Other)
  Sender: FDA-Public Use
  Company Number: 2010SP034898

PATIENT

DRUGS (1)
  1. IMPLANON [Suspect]
     Indication: DRUG EXPOSURE DURING PREGNANCY
     Dosage: TRPL

REACTIONS (2)
  - CONGENITAL CARDIOVASCULAR ANOMALY [None]
  - MATERNAL DRUGS AFFECTING FOETUS [None]
